FAERS Safety Report 8284601-9 (Version None)
Quarter: 2012Q2

REPORT INFORMATION
  Report Type: 
  Country: None (occurrence: None)
  Receive Date: 20120413
  Receipt Date: 20110913
  Transmission Date: 20120825
  Serious: No
  Sender: FDA-Public Use
  Company Number: US-ASTRAZENECA-2011SE25357

PATIENT
  Age: 55 Year
  Sex: Female

DRUGS (2)
  1. IBUPROFEN (ADVIL) [Concomitant]
  2. NEXIUM [Suspect]
     Route: 048

REACTIONS (7)
  - LIMB OPERATION [None]
  - DYSPHAGIA [None]
  - DRUG DOSE OMISSION [None]
  - ABDOMINAL PAIN UPPER [None]
  - VOMITING [None]
  - ACCIDENT [None]
  - EPISTAXIS [None]
